FAERS Safety Report 7948771-1 (Version None)
Quarter: 2011Q4

REPORT INFORMATION
  Report Type: 
  Country: None (occurrence: None)
  Receive Date: 20111130
  Receipt Date: 20111118
  Transmission Date: 20120403
  Serious: No
  Sender: FDA-Public Use
  Company Number: DE-NOVOPROD-338812

PATIENT

DRUGS (2)
  1. LIRAGLUTIDE FLEXPEN [Suspect]
     Indication: OBESITY
     Dosage: 3.0 MG, QD
     Route: 058
     Dates: start: 20110926
  2. RAMIPRIL [Concomitant]
     Dosage: 5 MG, QD

REACTIONS (1)
  - LIPASE INCREASED [None]
